FAERS Safety Report 20539890 (Version 6)
Quarter: 2023Q2

REPORT INFORMATION
  Report Type: Report from Study
  Country: CN (occurrence: CN)
  Receive Date: 20220302
  Receipt Date: 20230407
  Transmission Date: 20230721
  Serious: Yes (Life-Threatening, Hospitalization)
  Sender: FDA-Public Use
  Company Number: CN-AstraZeneca-2021A766867

PATIENT
  Age: 76 Year
  Sex: Male
  Weight: 70 kg

DRUGS (55)
  1. FAM-TRASTUZUMAB DERUXTECAN-NXKI [Suspect]
     Active Substance: FAM-TRASTUZUMAB DERUXTECAN-NXKI
     Indication: Oesophageal adenocarcinoma
     Dosage: 480 MG, TOTAL
     Route: 042
     Dates: start: 20210924, end: 20210924
  2. FAM-TRASTUZUMAB DERUXTECAN-NXKI [Suspect]
     Active Substance: FAM-TRASTUZUMAB DERUXTECAN-NXKI
     Dosage: 280 MG, TOTAL
     Route: 042
     Dates: start: 20211102, end: 20211102
  3. FAM-TRASTUZUMAB DERUXTECAN-NXKI [Suspect]
     Active Substance: FAM-TRASTUZUMAB DERUXTECAN-NXKI
     Dosage: 280 MG, TOTAL
     Route: 042
     Dates: start: 20211207, end: 20211207
  4. THROMBOPOIETIN [Concomitant]
     Active Substance: THROMBOPOIETIN
     Indication: Platelet count decreased
     Dosage: 1 IU DAILY
     Route: 058
     Dates: start: 20210930, end: 20211002
  5. DOMPERIDONE [Concomitant]
     Active Substance: DOMPERIDONE
     Indication: Abdominal distension
     Dosage: 1 DF, TID
     Route: 048
     Dates: start: 20210926, end: 20211015
  6. BACILLUS LICHENIFORMIS CAPSULE,LIVE [Concomitant]
     Indication: Product used for unknown indication
     Dosage: 500 MG, ONCE EVERY 8HR
     Route: 048
     Dates: start: 20211005, end: 20211005
  7. ESOMEPRAZOLE SODIUM [Concomitant]
     Active Substance: ESOMEPRAZOLE SODIUM
     Indication: Product used for unknown indication
     Dosage: 40 MG, QD
     Route: 042
     Dates: start: 20210924, end: 20210924
  8. BACILLUS LICHENIFORMIS CAPSULE,LIVE [Concomitant]
     Indication: Product used for unknown indication
     Dosage: 500 MG, ONCE EVERY 8HR
     Route: 048
     Dates: start: 20211008, end: 20211010
  9. GRANULOCYTE COLONY-STIMULATING FACTOR NOS [Concomitant]
     Active Substance: GRANULOCYTE COLONY-STIMULATING FACTOR NOS
     Indication: Product used for unknown indication
     Dosage: 300 MG, QD
     Route: 058
     Dates: start: 20211008, end: 20211010
  10. POTASSIUM CHLORIDE [Concomitant]
     Active Substance: POTASSIUM CHLORIDE
     Indication: Product used for unknown indication
     Dosage: 10 ML, QD
     Route: 042
     Dates: start: 20211008, end: 20211010
  11. MAGNESIUM ASPARTATE\POTASSIUM ASPARTATE [Concomitant]
     Active Substance: MAGNESIUM ASPARTATE\POTASSIUM ASPARTATE
     Indication: Product used for unknown indication
     Dosage: 10 ML,UNK
     Route: 042
     Dates: start: 20211008, end: 20211010
  12. IMIPENEM AND CILASTATIN SODIUM [Concomitant]
     Active Substance: CILASTATIN SODIUM\IMIPENEM
     Indication: Product used for unknown indication
     Dosage: 500 G/M2, QD
     Route: 042
     Dates: start: 20211008, end: 20211008
  13. IMIPENEM AND CILASTATIN SODIUM [Concomitant]
     Active Substance: CILASTATIN SODIUM\IMIPENEM
     Indication: Product used for unknown indication
     Dosage: 500 G/M2, QD
     Route: 042
     Dates: start: 20211009, end: 20211011
  14. ALBUMIN HUMAN [Concomitant]
     Active Substance: ALBUMIN HUMAN
     Indication: Product used for unknown indication
     Dosage: 20 MG, QD
     Route: 042
     Dates: start: 20211008, end: 20211011
  15. SODIUM CHLORIDE [Concomitant]
     Active Substance: SODIUM CHLORIDE
     Indication: Product used for unknown indication
     Dosage: 500 ML, QD
     Route: 042
     Dates: start: 20211008, end: 20211008
  16. COMPOUND ELECTROLYTES AND GLUCOSE INJECTION MG3 [Concomitant]
     Indication: Product used for unknown indication
     Dosage: 500 ML, QD
     Route: 042
     Dates: start: 20211008, end: 20211008
  17. PALONOSETRON HYDROCHLORIDE [Concomitant]
     Active Substance: PALONOSETRON HYDROCHLORIDE
     Indication: Product used for unknown indication
     Dosage: 250 UG, QD
     Route: 042
     Dates: start: 20210924, end: 20210924
  18. CASEIN;FATS NOS;FIBRE, DIETARY;MALTODEXTRIN;MINERALS NOS;VITAMINS NOS [Concomitant]
     Indication: Product used for unknown indication
     Dosage: UNK,ONCE EVERY 56 HR
     Route: 048
     Dates: start: 20211011
  19. MOSAPRIDE CITRATE [Concomitant]
     Active Substance: MOSAPRIDE CITRATE
     Indication: Product used for unknown indication
     Dosage: 5 MG, ONCE EVERY 8HR
     Route: 048
     Dates: start: 20211011, end: 20211015
  20. LACTULOSE [Concomitant]
     Active Substance: LACTULOSE
     Indication: Product used for unknown indication
     Dosage: 20 ML, AS NEEDED
     Route: 048
     Dates: start: 20210927, end: 20210930
  21. GLYCERIN [Concomitant]
     Active Substance: GLYCERIN
     Indication: Product used for unknown indication
     Dosage: UNK, AS NEEDED
     Route: 054
     Dates: start: 20210926, end: 20210930
  22. ESOMEPRAZOLE SODIUM [Concomitant]
     Active Substance: ESOMEPRAZOLE SODIUM
     Indication: Product used for unknown indication
     Dosage: 40 MG, QD
     Route: 042
     Dates: start: 20211102, end: 20211102
  23. PALONOSETRON HYDROCHLORIDE [Concomitant]
     Active Substance: PALONOSETRON HYDROCHLORIDE
     Indication: Product used for unknown indication
     Dosage: 250 UG, DAILY
     Route: 042
     Dates: start: 20211102, end: 20211102
  24. APREPITANT [Concomitant]
     Active Substance: APREPITANT
     Indication: Product used for unknown indication
     Dosage: UNK UNK, QD
     Route: 048
     Dates: start: 20211102, end: 20211104
  25. TAMSULOSIN HYDROCHLORIDE [Concomitant]
     Active Substance: TAMSULOSIN HYDROCHLORIDE
     Indication: Product used for unknown indication
     Dosage: UNK UNK, AS NEEDED
     Route: 048
     Dates: start: 20211130
  26. ESOMEPRAZOLE SODIUM [Concomitant]
     Active Substance: ESOMEPRAZOLE SODIUM
     Indication: Product used for unknown indication
     Dosage: 40 MG, QD
     Route: 042
     Dates: start: 20211207, end: 20211207
  27. PALONOSETRON HYDROCHLORIDE [Concomitant]
     Active Substance: PALONOSETRON HYDROCHLORIDE
     Indication: Product used for unknown indication
     Dosage: 250 UG, QD
     Route: 042
     Dates: start: 20211207, end: 20211207
  28. APREPITANT [Concomitant]
     Active Substance: APREPITANT
     Indication: Product used for unknown indication
     Dosage: UNK UNK, QD
     Route: 048
     Dates: start: 20210924, end: 20210924
  29. ESOMEPRAZOLE SODIUM [Concomitant]
     Active Substance: ESOMEPRAZOLE SODIUM
     Indication: Product used for unknown indication
     Dosage: 40 MG, QD
     Route: 042
     Dates: start: 20211020, end: 20211020
  30. BATROXOBIN [Concomitant]
     Active Substance: BATROXOBIN
     Indication: Product used for unknown indication
     Dosage: 1 IU, QD
     Route: 042
     Dates: start: 20211119, end: 20211124
  31. ALBUMIN HUMAN [Concomitant]
     Active Substance: ALBUMIN HUMAN
     Indication: Product used for unknown indication
     Dosage: 10 G, QD
     Route: 042
     Dates: start: 20211017, end: 20211017
  32. ALBUMIN HUMAN [Concomitant]
     Active Substance: ALBUMIN HUMAN
     Indication: Product used for unknown indication
     Dosage: 10 G, QD
     Route: 042
     Dates: start: 20211018, end: 20211029
  33. SODIUM CHLORIDE [Concomitant]
     Active Substance: SODIUM CHLORIDE
     Indication: Product used for unknown indication
     Dosage: 100 ML, QD
     Route: 042
     Dates: start: 20211022, end: 20211022
  34. DEXAMETHASONE ACETATE [Concomitant]
     Active Substance: DEXAMETHASONE ACETATE
     Indication: Product used for unknown indication
     Dosage: 5 MG, QD
     Route: 042
     Dates: start: 20211022, end: 20211022
  35. LYOPHILIZING THROMBIN [Concomitant]
     Indication: Product used for unknown indication
     Dosage: 5000 IU, QD
     Route: 054
     Dates: start: 20211022, end: 20211022
  36. CALCIUM GLYCEROPHOSPHATE;CALCIUM LACTATE;GLUCOSE;MAGNESIUM ACETATE;POT [Concomitant]
     Indication: Product used for unknown indication
     Dosage: 40 ML, QD
     Route: 054
     Dates: start: 20211022, end: 20211022
  37. SODIUM CHLORIDE [Concomitant]
     Active Substance: SODIUM CHLORIDE
     Indication: Product used for unknown indication
     Dosage: 100 ML, QD
     Route: 054
     Dates: start: 20211024, end: 20211029
  38. GRANULOCYTE COLONY-STIMULATING FACTOR NOS [Concomitant]
     Active Substance: GRANULOCYTE COLONY-STIMULATING FACTOR NOS
     Indication: Product used for unknown indication
     Dosage: UNK UNK, QD
     Route: 058
     Dates: start: 20210930, end: 20211002
  39. DEXAMETHASONE [Concomitant]
     Active Substance: DEXAMETHASONE
     Indication: Product used for unknown indication
     Dosage: 5 MG, QD
     Route: 054
     Dates: start: 20211024, end: 20211029
  40. LYOPHILIZING THROMBIN [Concomitant]
     Indication: Product used for unknown indication
     Dosage: 5000 IU,UNK
     Route: 054
     Dates: start: 20211024, end: 20211029
  41. CALCIUM GLYCEROPHOSPHATE;CALCIUM LACTATE;GLUCOSE;MAGNESIUM ACETATE;POT [Concomitant]
     Indication: Product used for unknown indication
     Dosage: 40 ML, QD
     Route: 054
     Dates: start: 20211024, end: 20211029
  42. RACEANISODAMINE HYDROCHLORIDE [Concomitant]
     Indication: Product used for unknown indication
     Dosage: 10 MG,UNK
     Route: 030
     Dates: start: 20211022, end: 20211022
  43. FERROUS SUCCINATE [Concomitant]
     Active Substance: FERROUS SUCCINATE
     Indication: Product used for unknown indication
     Dosage: UNK UNK, ONCE EVERY 8HR
     Route: 048
     Dates: start: 20211011, end: 20220205
  44. AMLODIPINE BESYLATE [Concomitant]
     Active Substance: AMLODIPINE BESYLATE
     Indication: Product used for unknown indication
     Dosage: UNK UNK, ONCE EVERY 8HR
     Route: 048
     Dates: start: 20210920, end: 20210922
  45. VALSARTAN [Concomitant]
     Active Substance: VALSARTAN
     Indication: Product used for unknown indication
     Dosage: UNK UNK, QD
     Route: 048
     Dates: start: 20210920, end: 20210922
  46. ALBUMIN HUMAN [Concomitant]
     Active Substance: ALBUMIN HUMAN
     Indication: Product used for unknown indication
     Dosage: 20 G, QD
     Route: 042
     Dates: start: 20211230, end: 20211230
  47. APREPITANT [Concomitant]
     Active Substance: APREPITANT
     Indication: Product used for unknown indication
     Dosage: UNK UNK, QD
     Route: 048
     Dates: start: 20210925, end: 20210926
  48. FERROUS SUCCINATE [Concomitant]
     Active Substance: FERROUS SUCCINATE
     Indication: Product used for unknown indication
     Dosage: 0 G, QD
     Route: 048
     Dates: start: 20211011
  49. THROMBOPOIETIN [Concomitant]
     Active Substance: THROMBOPOIETIN
     Indication: Platelet count decreased
     Dosage: UNK
     Route: 058
     Dates: start: 20211008, end: 20211008
  50. THROMBOPOIETIN [Concomitant]
     Active Substance: THROMBOPOIETIN
     Indication: Platelet count decreased
     Dosage: IU DAILY
     Route: 058
     Dates: start: 20211009, end: 20211010
  51. IBUPROFEN [Concomitant]
     Active Substance: IBUPROFEN
     Indication: Product used for unknown indication
     Dosage: 100 MG, QD
     Route: 048
     Dates: start: 20210927, end: 20211001
  52. IBUPROFEN [Concomitant]
     Active Substance: IBUPROFEN
     Indication: Product used for unknown indication
     Dosage: 100 MG, QD
     Route: 048
     Dates: start: 20211003, end: 20211007
  53. PIPEMIDIC ACID [Concomitant]
     Active Substance: PIPEMIDIC ACID
     Indication: Product used for unknown indication
     Dosage: 250 MG, QD
     Route: 048
     Dates: start: 20211004, end: 20211004
  54. ENOXAPARIN SODIUM [Concomitant]
     Active Substance: ENOXAPARIN SODIUM
     Indication: Product used for unknown indication
     Dosage: 6000 IU, QD
     Route: 058
     Dates: start: 20211020, end: 20211020
  55. BATROXOBIN [Concomitant]
     Active Substance: BATROXOBIN
     Indication: Product used for unknown indication
     Dosage: 1 IU, DAILY
     Route: 042
     Dates: start: 20211119, end: 20211124

REACTIONS (1)
  - Febrile neutropenia [Recovered/Resolved]

NARRATIVE: CASE EVENT DATE: 20211008
